FAERS Safety Report 9021288 (Version 1)
Quarter: 2013Q1

REPORT INFORMATION
  Report Type: Spontaneous
  Country: US (occurrence: US)
  Receive Date: 20130119
  Receipt Date: 20130119
  Transmission Date: 20140127
  Serious: No
  Sender: FDA-Public Use
  Company Number: US-ALLERGAN-1202698US

PATIENT
  Age: 59 None
  Sex: Female
  Weight: 58.05 kg

DRUGS (9)
  1. BOTOX? [Suspect]
     Indication: MIGRAINE
     Dosage: 155 UNITS, SINGLE
     Dates: start: 20120217, end: 20120217
  2. CAPOXONE [Concomitant]
     Indication: MULTIPLE SCLEROSIS
     Dosage: 20 MG, QD
     Dates: start: 20111117
  3. ATIVAN [Concomitant]
     Indication: ANXIETY
     Route: 048
  4. ZOMIG [Concomitant]
     Indication: MIGRAINE
     Route: 048
  5. ACTONEL [Concomitant]
     Indication: OSTEOPENIA
     Dosage: 35 MG, Q WEEK
     Route: 048
  6. FIOROCET [Concomitant]
     Indication: PAIN
  7. PAMELOR [Concomitant]
     Indication: DEPRESSION
     Dosage: 100 MG, QD
  8. KLONOPIN [Concomitant]
     Indication: SLEEP DISORDER
     Dosage: 1 MG, QD
  9. ORUDIS [Concomitant]
     Indication: MIGRAINE

REACTIONS (8)
  - Eyelid ptosis [Not Recovered/Not Resolved]
  - Neck pain [Not Recovered/Not Resolved]
  - Musculoskeletal pain [Recovering/Resolving]
  - Chest pain [Recovering/Resolving]
  - Sensory disturbance [Recovering/Resolving]
  - Hypopnoea [Recovering/Resolving]
  - Asthenia [Recovered/Resolved]
  - Dyspnoea [Recovered/Resolved]
